FAERS Safety Report 11708544 (Version 1)
Quarter: 2015Q4

REPORT INFORMATION
  Report Type: Spontaneous
  Country: US (occurrence: US)
  Receive Date: 20151104
  Receipt Date: 20151104
  Transmission Date: 20160304
  Serious: No
  Sender: FDA-Public Use
  Company Number: US-ELI_LILLY_AND_COMPANY-US201103002147

PATIENT
  Sex: Female

DRUGS (1)
  1. FORTEO [Suspect]
     Active Substance: TERIPARATIDE
     Indication: BLOOD CALCIUM DECREASED
     Dosage: UNK, DAILY (1/D)
     Dates: start: 20110214

REACTIONS (6)
  - Accidental overdose [Unknown]
  - Injection site pain [Unknown]
  - Infection [Unknown]
  - Off label use [Unknown]
  - Headache [Unknown]
  - Chest pain [Unknown]
